FAERS Safety Report 7428814-4 (Version None)
Quarter: 2011Q2

REPORT INFORMATION
  Report Type: 
  Country: None (occurrence: None)
  Receive Date: 20110421
  Receipt Date: 20110414
  Transmission Date: 20111010
  Serious: Yes (Hospitalization)
  Sender: FDA-Public Use
  Company Number: IT-BRISTOL-MYERS SQUIBB COMPANY-15677818

PATIENT
  Age: 42 Year
  Sex: Male

DRUGS (3)
  1. NORVIR [Suspect]
     Indication: HIV INFECTION
     Dosage: NORVIR  100 MG FILM COATED TABS
  2. REYATAZ [Suspect]
     Indication: HIV INFECTION
     Dosage: INTERRUPT ON 29AUG2009
     Route: 048
     Dates: start: 20050901
  3. EPIVIR [Suspect]
     Indication: HIV INFECTION
     Dosage: 1 DF=EPIVIR 300MG FILM COATED ORAL TABS
     Route: 048

REACTIONS (1)
  - RENAL COLIC [None]
